FAERS Safety Report 5806804-2 (Version None)
Quarter: 2008Q3

REPORT INFORMATION
  Report Type: 
  Country: None (occurrence: None)
  Receive Date: 20080711
  Receipt Date: 20080701
  Transmission Date: 20090109
  Serious: Yes (Other)
  Sender: FDA-Public Use
  Company Number: US-JNJFOC-20080700706

PATIENT
  Sex: Female
  Weight: 93.1 kg

DRUGS (13)
  1. KETOCONAZOLE [Suspect]
     Indication: PSORIASIS
     Route: 061
  2. ENBREL [Suspect]
     Indication: PSORIATIC ARTHROPATHY
     Route: 058
  3. LOTREL [Concomitant]
  4. TOPROL-XL [Concomitant]
  5. FUROSEMIDE [Concomitant]
  6. PREMARIN WITH METHYLTESTOSTERONE [Concomitant]
  7. REMICADE [Concomitant]
  8. ASPIRIN [Concomitant]
  9. CALCIUM WITH VITAMIN D [Concomitant]
  10. CENTRUM SILVER [Concomitant]
  11. GLUCOSAMINE [Concomitant]
  12. HYDROCORTISONE [Concomitant]
     Route: 061
  13. AMLODIPINE [Concomitant]

REACTIONS (6)
  - ABDOMINAL PAIN [None]
  - BACK PAIN [None]
  - INJECTION SITE ERYTHEMA [None]
  - INJECTION SITE IRRITATION [None]
  - PANCREATIC DISORDER [None]
  - PSORIASIS [None]
